FAERS Safety Report 17285127 (Version 2)
Quarter: 2020Q1

REPORT INFORMATION
  Report Type: Spontaneous
  Country: US (occurrence: US)
  Receive Date: 20200117
  Receipt Date: 20200131
  Transmission Date: 20200409
  Serious: Yes (Other)
  Sender: FDA-Public Use
  Company Number: US-BAUSCH-BL-2018-020053

PATIENT
  Age: 85 Year
  Sex: Female
  Weight: 64.47 kg

DRUGS (7)
  1. PRESERVISION AREDS 2 FORMULA SOFT GELS [Suspect]
     Active Substance: MINERALS\VITAMINS
     Dosage: RE-STARTED ABOUT A YEAR AGO
     Route: 048
     Dates: start: 2019
  2. PRESERVISION AREDS 2 FORMULA SOFT GELS [Suspect]
     Active Substance: MINERALS\VITAMINS
     Indication: NEOVASCULAR AGE-RELATED MACULAR DEGENERATION
     Route: 048
     Dates: start: 201409, end: 20180720
  3. MURO 128 [Suspect]
     Active Substance: SODIUM CHLORIDE
     Indication: CORNEAL DISORDER
     Route: 047
     Dates: start: 20191223, end: 20191223
  4. MURO 128 [Suspect]
     Active Substance: SODIUM CHLORIDE
     Route: 047
     Dates: start: 20191224, end: 20191224
  5. MURO 128 [Suspect]
     Active Substance: SODIUM CHLORIDE
     Route: 047
     Dates: start: 20200118
  6. BENAZEPRIL [Concomitant]
     Active Substance: BENAZEPRIL HYDROCHLORIDE
     Indication: HYPERTENSION
     Route: 065
  7. LEVOTHYROXINE. [Concomitant]
     Active Substance: LEVOTHYROXINE
     Indication: HYPOTHYROIDISM

REACTIONS (4)
  - Retching [Not Recovered/Not Resolved]
  - Product use complaint [Unknown]
  - Macular degeneration [Not Recovered/Not Resolved]
  - Condition aggravated [Not Recovered/Not Resolved]

NARRATIVE: CASE EVENT DATE: 201806
